FAERS Safety Report 6905573-2 (Version None)
Quarter: 2010Q3

REPORT INFORMATION
  Report Type: 
  Country: None (occurrence: None)
  Receive Date: 20100804
  Receipt Date: 20071126
  Transmission Date: 20110219
  Serious: No
  Sender: FDA-Public Use
  Company Number: US-PFIZER INC-2007099564

PATIENT
  Sex: Female
  Weight: 60 kg

DRUGS (5)
  1. CHANTIX [Suspect]
     Indication: SMOKING CESSATION THERAPY
     Dates: start: 20071116
  2. THEOPHYLLINE [Concomitant]
     Indication: DYSPNOEA
  3. LISINOPRIL [Concomitant]
     Indication: CARDIAC DISORDER
  4. LORAZEPAM [Concomitant]
     Indication: NERVOUS SYSTEM DISORDER
  5. ACETYLSALICYLIC ACID SRT [Concomitant]

REACTIONS (1)
  - CONSTIPATION [None]
